FAERS Safety Report 24752546 (Version 1)
Quarter: 2024Q4

REPORT INFORMATION
  Report Type: Spontaneous
  Country: IT (occurrence: IT)
  Receive Date: 20241219
  Receipt Date: 20241219
  Transmission Date: 20250114
  Serious: Yes (Other)
  Sender: MACLEODS
  Company Number: IT-MLMSERVICE-20241210-PI258382-00057-1

PATIENT

DRUGS (4)
  1. ATORVASTATIN [Suspect]
     Active Substance: ATORVASTATIN
     Indication: Dyslipidaemia
     Route: 065
     Dates: start: 2018, end: 2023
  2. DULAGLUTIDE [Suspect]
     Active Substance: DULAGLUTIDE
     Indication: Type 2 diabetes mellitus
     Route: 065
     Dates: start: 202202, end: 202208
  3. DULAGLUTIDE [Suspect]
     Active Substance: DULAGLUTIDE
     Route: 065
     Dates: start: 202208, end: 2023
  4. METFORMIN [Concomitant]
     Active Substance: METFORMIN HYDROCHLORIDE
     Indication: Type 2 diabetes mellitus
     Route: 065
     Dates: start: 2018, end: 2023

REACTIONS (2)
  - Polyhydramnios [Unknown]
  - Maternal exposure during pregnancy [Unknown]
